FAERS Safety Report 5920358-1 (Version None)
Quarter: 2008Q4

REPORT INFORMATION
  Report Type: 
  Country: None (occurrence: None)
  Receive Date: 20081016
  Receipt Date: 20081007
  Transmission Date: 20090506
  Serious: Yes (Disabling, Other)
  Sender: FDA-Public Use
  Company Number: PHHY2008SA23789

PATIENT
  Sex: Female
  Weight: 85 kg

DRUGS (7)
  1. ACLASTA [Suspect]
     Indication: OSTEOPOROSIS
     Dosage: 8 MG/100 ML, ONCE
     Dates: start: 20080903
  2. TRAMADOL HCL [Concomitant]
     Indication: OSTEOPOROSIS
     Dosage: 100 MG
  3. PERFALGAN [Concomitant]
     Indication: OSTEOPOROSIS
     Dosage: 1 G, Q12H
     Route: 042
  4. NEURONTIN [Concomitant]
     Dosage: 300 MG, Q12H
  5. RINGER'S [Concomitant]
  6. INSULIN [Concomitant]
  7. ZOFRAN [Concomitant]

REACTIONS (4)
  - BLOOD GLUCOSE INCREASED [None]
  - COGNITIVE DISORDER [None]
  - DEPRESSED LEVEL OF CONSCIOUSNESS [None]
  - VITAMIN D DECREASED [None]
